FAERS Safety Report 6843903-0 (Version None)
Quarter: 2010Q3

REPORT INFORMATION
  Report Type: 
  Country: None (occurrence: None)
  Receive Date: 20100714
  Receipt Date: 20100714
  Transmission Date: 20110219
  Serious: Yes (Hospitalization)
  Sender: FDA-Public Use
  Company Number: None

PATIENT
  Sex: Male
  Weight: 64.5 kg

DRUGS (2)
  1. AZACITIDINE [Suspect]
     Dosage: 880 MG
     Dates: end: 20071124
  2. MS-275 (SNDX-275, ENTINOSTAT) [Suspect]
     Dosage: 14 MG
     Dates: end: 20071124

REACTIONS (1)
  - BLOOD CREATININE INCREASED [None]
